FAERS Safety Report 19883014 (Version 1)
Quarter: 2021Q3

REPORT INFORMATION
  Report Type: Spontaneous
  Country: DE (occurrence: DE)
  Receive Date: 20210926
  Receipt Date: 20210926
  Transmission Date: 20211014
  Serious: Yes (Other)
  Sender: FDA-Public Use
  Company Number: DE-DEXPHARM-20211559

PATIENT
  Sex: Female
  Weight: 1.74 kg

DRUGS (2)
  1. FOIO?FORTE [Concomitant]
  2. VENLAFAXINE [Suspect]
     Active Substance: VENLAFAXINE HYDROCHLORIDE
     Dosage: TOOK FOLIO?FORTE (FOLIC ACID) IN THE FIRST TRIMESTER.
     Route: 064

REACTIONS (2)
  - Small for dates baby [Unknown]
  - Foetal growth restriction [Unknown]
